FAERS Safety Report 22045824 (Version 1)
Quarter: 2023Q1

REPORT INFORMATION
  Report Type: Spontaneous
  Country: IT (occurrence: IT)
  Receive Date: 20230228
  Receipt Date: 20230228
  Transmission Date: 20230418
  Serious: Yes (Hospitalization)
  Sender: FDA-Public Use
  Company Number: None

PATIENT
  Age: 84 Year
  Sex: Male

DRUGS (2)
  1. ENOXAPARIN SODIUM [Suspect]
     Active Substance: ENOXAPARIN SODIUM
     Dosage: DOSAGE: 4000 IU/2 AT THE DAY
     Dates: start: 20230129, end: 20230211
  2. CEFTRIAXONE [Concomitant]
     Active Substance: CEFTRIAXONE
     Dosage: DOSAGE: 2 G/DAY
     Dates: start: 20230129, end: 20230206

REACTIONS (2)
  - Rash [Recovering/Resolving]
  - Pruritus [Recovering/Resolving]

NARRATIVE: CASE EVENT DATE: 20230211
